FAERS Safety Report 15624213 (Version 1)
Quarter: 2018Q4

REPORT INFORMATION
  Report Type: Spontaneous
  Country: US (occurrence: US)
  Receive Date: 20181116
  Receipt Date: 20181116
  Transmission Date: 20190205
  Serious: No
  Sender: FDA-Public Use
  Company Number: US-HTU-2018US017756

PATIENT
  Sex: Male

DRUGS (4)
  1. ALLEGRA ALLERGY [Concomitant]
     Active Substance: FEXOFENADINE HYDROCHLORIDE
  2. TYLENOL WITH CODEINE [Concomitant]
     Active Substance: ACETAMINOPHEN\CODEINE PHOSPHATE
  3. TAZORAC [Concomitant]
     Active Substance: TAZAROTENE
  4. VALCHLOR [Suspect]
     Active Substance: MECHLORETHAMINE
     Indication: MYCOSIS FUNGOIDES
     Dosage: UNK, UNKNOWN
     Route: 061
     Dates: start: 20180901

REACTIONS (6)
  - Disease progression [Unknown]
  - Hypersensitivity [Unknown]
  - Product dose omission [Unknown]
  - Skin lesion [Unknown]
  - Dermatitis [Unknown]
  - Rash [Unknown]
